FAERS Safety Report 25451458 (Version 4)
Quarter: 2025Q3

REPORT INFORMATION
  Report Type: Spontaneous
  Country: AU (occurrence: AU)
  Receive Date: 20250618
  Receipt Date: 20250805
  Transmission Date: 20251021
  Serious: Yes (Other)
  Sender: ORGANON
  Company Number: AU-ORGANON-O2506AUS001318

PATIENT
  Age: 32 Year
  Sex: Female

DRUGS (1)
  1. ETONOGESTREL [Suspect]
     Active Substance: ETONOGESTREL
     Indication: Contraception
     Route: 059
     Dates: start: 20230511, end: 20250508

REACTIONS (1)
  - Pregnancy with implant contraceptive [Unknown]
